FAERS Safety Report 10173496 (Version 6)
Quarter: 2018Q4

REPORT INFORMATION
  Report Type: Report from Study
  Country: US (occurrence: US)
  Receive Date: 20140515
  Receipt Date: 20181213
  Transmission Date: 20190204
  Serious: Yes (Hospitalization, Other)
  Sender: FDA-Public Use
  Company Number: PHHO2014US006800

PATIENT
  Age: 67 Year
  Sex: Female
  Weight: 70.21 kg

DRUGS (11)
  1. TRAMADOL. [Suspect]
     Active Substance: TRAMADOL
     Dosage: 0.5-1 Q6H
     Route: 048
  2. ONDANSETRON [Suspect]
     Active Substance: ONDANSETRON
     Indication: NAUSEA
     Dosage: 8 MG, TID
     Route: 048
     Dates: start: 20140131
  3. METOCLOPRAMIDE. [Suspect]
     Active Substance: METOCLOPRAMIDE
     Indication: NAUSEA
     Dosage: 10 MG, PRN
     Route: 048
     Dates: start: 20131216, end: 20140429
  4. LETROZOLE. [Suspect]
     Active Substance: LETROZOLE
     Dosage: 2.5 MG, QD (28 DAY CYCLE)
     Route: 048
  5. OXYCODONE [Suspect]
     Active Substance: OXYCODONE
     Indication: PRODUCT USED FOR UNKNOWN INDICATION
     Dosage: UNK
     Route: 065
  6. IBUPROFEN. [Suspect]
     Active Substance: IBUPROFEN
     Indication: PAIN
     Dosage: 400 MG, Q8H
     Route: 048
     Dates: start: 20121102, end: 20150208
  7. TRAMADOL. [Suspect]
     Active Substance: TRAMADOL
     Indication: PAIN
     Dosage: 50 MG, Q6H
     Route: 048
     Dates: end: 20150208
  8. KISQALI [Suspect]
     Active Substance: RIBOCICLIB
     Indication: BREAST CANCER METASTATIC
     Dosage: 600 MG, QD (FOR 3 WEEKS THEN 1 WEEK OFF, 28 DAYS CYCLE)
     Route: 048
     Dates: start: 20140401, end: 20140507
  9. LETROZOLE. [Suspect]
     Active Substance: LETROZOLE
     Indication: BREAST CANCER METASTATIC
     Dosage: 2.5 MG, QD (28 DAY CYCLE)
     Route: 048
     Dates: start: 20140401, end: 20140507
  10. KISQALI [Suspect]
     Active Substance: RIBOCICLIB
     Dosage: 600 MG, QD (FOR 3 WEEKS THEN 1 WEEK OFF, 28 DAYS CYCLE)
     Route: 048
     Dates: end: 20141021
  11. IBUPROFEN. [Suspect]
     Active Substance: IBUPROFEN
     Dosage: 1-1.5 DF
     Route: 048

REACTIONS (4)
  - Upper respiratory tract infection [Recovered/Resolved]
  - Constipation [Not Recovered/Not Resolved]
  - Fatigue [Not Recovered/Not Resolved]
  - Post herpetic neuralgia [Not Recovered/Not Resolved]

NARRATIVE: CASE EVENT DATE: 20140421
